FAERS Safety Report 10309971 (Version 1)
Quarter: 2014Q3

REPORT INFORMATION
  Report Type: Spontaneous
  Country: US (occurrence: None)
  Receive Date: 20140715
  Receipt Date: 20140715
  Transmission Date: 20150326
  Serious: Yes (Other)
  Sender: FDA-Public Use
  Company Number: None

PATIENT
  Age: 17 Year
  Weight: 58.97 kg

DRUGS (1)
  1. ZOLOFT [Suspect]
     Active Substance: SERTRALINE HYDROCHLORIDE
     Indication: ANTIDEPRESSANT THERAPY
     Dosage: 2 PILLS  ONCE DAILY  TAKEN BY MOUTH
     Route: 048

REACTIONS (4)
  - Irritability [None]
  - Depression [None]
  - Depressed mood [None]
  - Drug effect decreased [None]

NARRATIVE: CASE EVENT DATE: 20140712
